FAERS Safety Report 24648242 (Version 1)
Quarter: 2024Q4

REPORT INFORMATION
  Report Type: Spontaneous
  Country: CA (occurrence: CA)
  Receive Date: 20241121
  Receipt Date: 20241121
  Transmission Date: 20250115
  Serious: Yes (Other)
  Sender: CSL BEHRING
  Company Number: CA-BEH-2024185449

PATIENT
  Age: 61 Year
  Sex: Male

DRUGS (2)
  1. ALBUMIN HUMAN [Suspect]
     Active Substance: ALBUMIN HUMAN
     Indication: Uveal melanoma
     Dosage: 1 ML
     Route: 042
  2. ALBUMIN HUMAN [Suspect]
     Active Substance: ALBUMIN HUMAN
     Indication: Off label use

REACTIONS (4)
  - Pyrexia [Recovered/Resolved]
  - Back pain [Recovered/Resolved]
  - Fatigue [Recovered/Resolved]
  - Off label use [Unknown]
